FAERS Safety Report 7764717-3 (Version None)
Quarter: 2011Q3

REPORT INFORMATION
  Report Type: 
  Country: None (occurrence: None)
  Receive Date: 20110921
  Receipt Date: 20110915
  Transmission Date: 20111222
  Serious: Yes (Life-Threatening, Disabling)
  Sender: FDA-Public Use
  Company Number: GB-TEVA-268711ISR

PATIENT
  Age: 78 Year
  Sex: Male

DRUGS (9)
  1. SIMVASTATIN [Suspect]
     Dosage: PAST
     Dates: start: 20060101
  2. ATORVASTATIN [Suspect]
     Dosage: PAST
     Dates: start: 20060101
  3. ALLOPURINOL [Concomitant]
     Dosage: 300 MILLIGRAM;
     Route: 048
  4. SIMVASTATIN [Suspect]
     Indication: HYPERCHOLESTEROLAEMIA
  5. ATORVASTATIN [Suspect]
     Indication: HYPERCHOLESTEROLAEMIA
     Route: 048
  6. AMLODIPINE [Concomitant]
     Dosage: 5 MILLIGRAM;
     Route: 048
  7. LEVOTHYROXINE SODIUM [Concomitant]
     Dosage: 50 MICROGRAM;
     Route: 048
  8. OMEPRAZOLE [Concomitant]
     Dosage: 20 MILLIGRAM; 1-2, GASTRO RESISTANT
     Route: 048
  9. NAPROXEN [Concomitant]
     Dosage: 500 MILLIGRAM; 1-2 AS REQUIRED
     Route: 048

REACTIONS (3)
  - INTERSTITIAL LUNG DISEASE [None]
  - PULMONARY FIBROSIS [None]
  - BLOOD IMMUNOGLOBULIN E INCREASED [None]
